FAERS Safety Report 8465655-3 (Version None)
Quarter: 2012Q2

REPORT INFORMATION
  Report Type: 
  Country: None (occurrence: None)
  Receive Date: 20120626
  Receipt Date: 20120625
  Transmission Date: 20120825
  Serious: Yes (Hospitalization)
  Sender: FDA-Public Use
  Company Number: IE-FRI-1000031450

PATIENT
  Age: 72 Year
  Sex: Female

DRUGS (4)
  1. BENDROFLUMETHIAZIDE [Suspect]
  2. LISINOPRIL [Suspect]
  3. CITALOPRAM HYDROBROMIDE [Suspect]
  4. LANSOPRAZOLE [Suspect]

REACTIONS (2)
  - STATUS EPILEPTICUS [None]
  - PERITONITIS [None]
